FAERS Safety Report 17559812 (Version 1)
Quarter: 2020Q1

REPORT INFORMATION
  Report Type: Spontaneous
  Country: US (occurrence: US)
  Receive Date: 20200311
  Receipt Date: 20200311
  Transmission Date: 20200409
  Serious: Yes (Death)
  Sender: FDA-Public Use
  Company Number: None

PATIENT
  Age: 65 Year
  Sex: Male
  Weight: 110 kg

DRUGS (1)
  1. YESCARTA [Suspect]
     Active Substance: AXICABTAGENE CILOLEUCEL
     Indication: DIFFUSE LARGE B-CELL LYMPHOMA
     Route: 042

REACTIONS (10)
  - Septic shock [None]
  - Pancytopenia [None]
  - Escherichia test [None]
  - Cardiac arrest [None]
  - Hypoxia [None]
  - Hypotension [None]
  - Pulseless electrical activity [None]
  - Pyrexia [None]
  - Neurotoxicity [None]
  - Hypovolaemic shock [None]

NARRATIVE: CASE EVENT DATE: 20200216
